FAERS Safety Report 6409286-5 (Version None)
Quarter: 2009Q4

REPORT INFORMATION
  Report Type: 
  Country: None (occurrence: None)
  Receive Date: 20091021
  Receipt Date: 20091013
  Transmission Date: 20100525
  Serious: Yes (Other)
  Sender: FDA-Public Use
  Company Number: US-AMGEN-QUU367299

PATIENT
  Sex: Female

DRUGS (5)
  1. ENBREL [Suspect]
     Indication: RHEUMATOID ARTHRITIS
     Route: 058
     Dates: start: 20090211, end: 20090416
  2. PREDNISONE [Concomitant]
  3. OMEPRAZOLE [Concomitant]
  4. DARVOCET-N 100 [Concomitant]
  5. UNSPECIFIED MEDICATION [Concomitant]

REACTIONS (4)
  - COMPLEMENT FACTOR C3 DECREASED [None]
  - COMPLEMENT FACTOR C4 DECREASED [None]
  - LUPUS-LIKE SYNDROME [None]
  - THROMBOCYTOPENIA [None]
